FAERS Safety Report 4359641-2 (Version None)
Quarter: 2004Q2

REPORT INFORMATION
  Report Type: 
  Country: None (occurrence: None)
  Receive Date: 20040513
  Receipt Date: 20040505
  Transmission Date: 20050107
  Serious: No
  Sender: FDA-Public Use
  Company Number: 04P-161-0259685-00

PATIENT
  Age: 35 Year
  Sex: Female
  Weight: 60 kg

DRUGS (1)
  1. BIAXIN [Suspect]
     Indication: CHRONIC SINUSITIS
     Dosage: 250 MG, 2 IN 1 D, PER ORAL
     Route: 048
     Dates: start: 20040428, end: 20040502

REACTIONS (3)
  - DYSGEUSIA [None]
  - HALLUCINATION [None]
  - HYPERTENSION [None]
